FAERS Safety Report 8402205-1 (Version None)
Quarter: 2012Q2

REPORT INFORMATION
  Report Type: 
  Country: None (occurrence: None)
  Receive Date: 20120601
  Receipt Date: 20120529
  Transmission Date: 20120825
  Serious: Yes (Other)
  Sender: FDA-Public Use
  Company Number: US-PFIZER INC-2012129858

PATIENT
  Sex: Female

DRUGS (1)
  1. CHANTIX [Suspect]
     Dosage: UNK
     Dates: start: 20090901

REACTIONS (4)
  - ABNORMAL DREAMS [None]
  - SUICIDAL IDEATION [None]
  - DEPRESSION [None]
  - ANXIETY [None]
